FAERS Safety Report 8890794 (Version 1)
Quarter: 2012Q4

REPORT INFORMATION
  Report Type: 
  Country: US (occurrence: US)
  Receive Date: 20121106
  Receipt Date: 20121106
  Transmission Date: 20130627
  Serious: Yes (Hospitalization)
  Sender: FDA-Public Use
  Company Number: US-GILEAD-2012-0063260

PATIENT
  Age: 27 Year
  Sex: Female

DRUGS (1)
  1. LETAIRIS [Suspect]
     Indication: PRODUCT USED FOR UNKNOWN INDICATION
     Dosage: 5 mg, UNK
     Route: 048
     Dates: start: 20100311

REACTIONS (4)
  - Muscle spasms [Unknown]
  - Muscle spasms [Unknown]
  - Myalgia [Unknown]
  - Nasopharyngitis [Unknown]
